FAERS Safety Report 15146595 (Version 1)
Quarter: 2018Q3

REPORT INFORMATION
  Report Type: Spontaneous
  Country: US (occurrence: US)
  Receive Date: 20180715
  Receipt Date: 20180715
  Transmission Date: 20181010
  Serious: No
  Sender: FDA-Public Use
  Company Number: US-CELGENEUS-USA-20180703236

PATIENT
  Age: 88 Year
  Sex: Female
  Weight: 54.93 kg

DRUGS (1)
  1. REVLIMID [Suspect]
     Active Substance: LENALIDOMIDE
     Indication: PLASMA CELL MYELOMA
     Dosage: 10 MILLIGRAM
     Route: 048
     Dates: start: 20180613, end: 20180614

REACTIONS (5)
  - Thought withdrawal [Recovered/Resolved]
  - Unresponsive to stimuli [Recovered/Resolved]
  - Dizziness [Recovered/Resolved]
  - Restlessness [Recovered/Resolved]
  - Pruritus [Recovered/Resolved]

NARRATIVE: CASE EVENT DATE: 20180614
